FAERS Safety Report 6944707-0 (Version None)
Quarter: 2010Q3

REPORT INFORMATION
  Report Type: 
  Country: None (occurrence: None)
  Receive Date: 20100827
  Receipt Date: 20100818
  Transmission Date: 20110219
  Serious: Yes (Death, Life-Threatening, Hospitalization)
  Sender: FDA-Public Use
  Company Number: US-JNJFOC-20100806771

PATIENT
  Sex: Male

DRUGS (2)
  1. REOPRO [Suspect]
     Indication: ANTICOAGULANT THERAPY
     Route: 065
  2. MIDAZOLAM HCL [Concomitant]

REACTIONS (1)
  - DEATH [None]
